FAERS Safety Report 9732082 (Version 1)
Quarter: 2013Q4

REPORT INFORMATION
  Report Type: Spontaneous
  Country: US (occurrence: None)
  Receive Date: 20131204
  Receipt Date: 20131204
  Transmission Date: 20140711
  Serious: No
  Sender: FDA-Public Use
  Company Number: None

PATIENT
  Sex: 0

DRUGS (3)
  1. HIZENTRA [Suspect]
     Indication: IMMUNODEFICIENCY
     Dosage: 35ML ONCE WEEKLY SUBCUTANEOUS
     Route: 058
     Dates: start: 20130624, end: 20131203
  2. DIPHENHYDRAMINE [Concomitant]
  3. ACETAMINOPHEN [Concomitant]

REACTIONS (4)
  - Urticaria [None]
  - Tremor [None]
  - Pyrexia [None]
  - Blister [None]
